FAERS Safety Report 9767957 (Version 1)
Quarter: 2013Q4

REPORT INFORMATION
  Report Type: Spontaneous
  Country: DE (occurrence: None)
  Receive Date: 20131003
  Receipt Date: 20131003
  Transmission Date: 20140711
  Serious: Yes (Death)
  Sender: FDA-Public Use
  Company Number: KAD201309-001266

PATIENT
  Age: 57 Year
  Sex: Female

DRUGS (3)
  1. AMPHOTERICIN B [Suspect]
     Indication: FUSARIUM INFECTION
  2. VORICONAZOLE [Suspect]
     Indication: FUSARIUM INFECTION
  3. POSACONAZOLE [Suspect]
     Indication: FUSARIUM INFECTION

REACTIONS (11)
  - Septic shock [None]
  - Multi-organ failure [None]
  - Treatment failure [None]
  - Off label use [None]
  - Leukaemia recurrent [None]
  - Stem cell transplant [None]
  - Fusarium infection [None]
  - Tachyarrhythmia [None]
  - Cardiac murmur [None]
  - Infection in an immunocompromised host [None]
  - Infection [None]
